FAERS Safety Report 5468918-9 (Version None)
Quarter: 2007Q3

REPORT INFORMATION
  Report Type: 
  Country: None (occurrence: None)
  Receive Date: 20070926
  Receipt Date: 20070921
  Transmission Date: 20080115
  Serious: Yes (Other)
  Sender: FDA-Public Use
  Company Number: ES-MERCK-0709ESP00032

PATIENT
  Age: 38 Year
  Sex: Male

DRUGS (1)
  1. MAXALT-MLT [Suspect]
     Indication: MIGRAINE
     Route: 048
     Dates: start: 20040101

REACTIONS (2)
  - DRUG ABUSER [None]
  - NO ADVERSE REACTION [None]
